FAERS Safety Report 18575486 (Version 1)
Quarter: 2020Q4

REPORT INFORMATION
  Report Type: Spontaneous
  Country: DE (occurrence: DE)
  Receive Date: 20201203
  Receipt Date: 20201203
  Transmission Date: 20210114
  Serious: Yes (Hospitalization, Other)
  Sender: FDA-Public Use
  Company Number: NVSC2020DE316634

PATIENT
  Age: 71 Year
  Sex: Female
  Weight: 70 kg

DRUGS (2)
  1. CIPROFLOXACIN. [Suspect]
     Active Substance: CIPROFLOXACIN
     Indication: URINARY TRACT INFECTION
     Dosage: 1 DF, Q12H (1-0-1)
     Route: 048
     Dates: start: 20201101, end: 20201103
  2. IBUPROFEN. [Concomitant]
     Active Substance: IBUPROFEN
     Indication: ORTHOPAEDIC PROCEDURE
     Dosage: UNK
     Route: 065

REACTIONS (2)
  - Acute hepatic failure [Recovering/Resolving]
  - Yellow skin [Unknown]

NARRATIVE: CASE EVENT DATE: 20201102
